FAERS Safety Report 7351100-8 (Version None)
Quarter: 2011Q1

REPORT INFORMATION
  Report Type: 
  Country: None (occurrence: None)
  Receive Date: 20110314
  Receipt Date: 20110228
  Transmission Date: 20110831
  Serious: Yes (Hospitalization)
  Sender: FDA-Public Use
  Company Number: JP-PFIZER INC-2011043169

PATIENT
  Age: 57 Year
  Sex: Male
  Weight: 66 kg

DRUGS (2)
  1. KETOPROFEN [Concomitant]
     Dosage: UNK
     Dates: start: 20101122
  2. CELECOX [Suspect]
     Indication: PERIARTHRITIS
     Dosage: 100 MG, 2X/DAY
     Route: 048
     Dates: start: 20101122, end: 20110130

REACTIONS (2)
  - GASTRIC ULCER HAEMORRHAGE [None]
  - GAIT DISTURBANCE [None]
